FAERS Safety Report 9003987 (Version 3)
Quarter: 2013Q2

REPORT INFORMATION
  Report Type: Report from Study
  Country: JP (occurrence: JP)
  Receive Date: 20130108
  Receipt Date: 20130619
  Transmission Date: 20140414
  Serious: Yes (Hospitalization)
  Sender: FDA-Public Use
  Company Number: JP-VERTEX PHARMACEUTICALS INC.-2013-000203

PATIENT
  Age: 62 Year
  Sex: Female

DRUGS (7)
  1. MP-424 [Suspect]
     Indication: HEPATITIS C
     Dosage: 2250 MG, UNK
     Route: 048
     Dates: start: 20120911, end: 20121030
  2. PEGINTRON [Suspect]
     Indication: CHRONIC HEPATITIS C
     Dosage: 80 ?G, QW
     Route: 051
     Dates: start: 20120911, end: 20121023
  3. PEGINTRON [Suspect]
     Dosage: 80 ?G, QW
     Route: 058
     Dates: start: 20121111, end: 20121111
  4. REBETOL [Suspect]
     Indication: CHRONIC HEPATITIS C
     Dosage: 400 MG, QD
     Route: 048
     Dates: start: 20120911, end: 20120920
  5. REBETOL [Suspect]
     Dosage: 200 MG, QD
     Route: 048
     Dates: start: 20120921, end: 20121029
  6. REBETOL [Suspect]
     Dosage: 200 MG, QD
     Route: 048
     Dates: start: 20121113, end: 20121119
  7. LIVALO [Suspect]
     Dosage: 2 MG, QD
     Route: 048
     Dates: start: 20120828, end: 20121217

REACTIONS (1)
  - Hepatic function abnormal [Recovered/Resolved]
